FAERS Safety Report 5381360-4 (Version None)
Quarter: 2007Q3

REPORT INFORMATION
  Report Type: 
  Country: None (occurrence: None)
  Receive Date: 20070709
  Receipt Date: 20070625
  Transmission Date: 20080115
  Serious: Yes (Hospitalization, Disabling, Other)
  Sender: FDA-Public Use
  Company Number: US-ELI_LILLY_AND_COMPANY-US200704002478

PATIENT
  Age: 54 Year
  Sex: Male

DRUGS (29)
  1. ZYPREXA [Suspect]
     Indication: SCHIZOAFFECTIVE DISORDER
     Dosage: 5 MG, 2/D
     Route: 048
     Dates: start: 20040511, end: 20050405
  2. ZYPREXA [Suspect]
     Dosage: 5 MG, 2/D
     Route: 048
     Dates: start: 20061221
  3. ZYPREXA [Suspect]
     Dosage: 20 MG, DAILY (1/D)
     Dates: start: 19970101
  4. ZYPREXA [Suspect]
     Dosage: 30 MG, DAILY (1/D)
  5. ZYPREXA [Suspect]
     Dosage: 10 MG, DAILY (1/D)
  6. ZYPREXA [Suspect]
     Dosage: 50 MG, DAILY (1/D)
  7. ATIVAN [Concomitant]
     Dosage: 2 MG, OTHER
     Route: 048
     Dates: start: 20040121, end: 20040121
  8. ATIVAN [Concomitant]
     Dosage: 1 MG, OTHER
     Route: 048
     Dates: start: 20040215, end: 20040215
  9. RISPERIDONE [Concomitant]
     Dosage: 6 MG, EACH EVENING
     Route: 048
     Dates: start: 20040312
  10. RISPERIDONE [Concomitant]
     Dosage: 2 MG, 2/D
     Dates: start: 20050405, end: 20050927
  11. RISPERIDONE [Concomitant]
     Dosage: 1 MG, EACH MORNING
     Dates: start: 20050927, end: 20051108
  12. RISPERIDONE [Concomitant]
     Dosage: 1 MG, EACH EVENING
     Dates: start: 20050524, end: 20050524
  13. RISPERDAL CONSTA [Concomitant]
     Dosage: 37.5 MG, 2/W
     Route: 030
     Dates: start: 20040312
  14. RISPERDAL CONSTA [Concomitant]
     Dosage: 25 MG, OTHER
     Route: 030
     Dates: start: 20050524
  15. HALDOL [Concomitant]
     Dosage: 5 MG, OTHER
     Route: 048
     Dates: start: 20040215, end: 20040215
  16. COGENTIN [Concomitant]
     Dosage: 2 MG, OTHER
     Route: 048
     Dates: start: 20040215, end: 20040215
  17. COGENTIN [Concomitant]
     Dosage: 2 MG, OTHER
     Route: 030
     Dates: start: 20060208, end: 20060208
  18. TRAZODONE HCL [Concomitant]
     Dosage: 100 MG, EACH EVENING
     Dates: start: 20050524
  19. LEXAPRO [Concomitant]
     Dosage: 10 MG, EACH MORNING
     Dates: start: 20051205
  20. LEXAPRO [Concomitant]
     Dosage: 20 MG, EACH MORNING
     Dates: start: 20061024
  21. ZYPREXA ZYDIS [Suspect]
     Indication: SCHIZOAFFECTIVE DISORDER
     Dosage: 10 MG, 2/D
     Route: 048
     Dates: start: 20030801
  22. ZYPREXA ZYDIS [Suspect]
     Dosage: 15 MG, 2/D
     Route: 048
     Dates: start: 20040226, end: 20040312
  23. ZYPREXA ZYDIS [Suspect]
     Dosage: 5 MG, 2/D
     Route: 048
     Dates: start: 20051108
  24. ZYPREXA ZYDIS [Suspect]
     Dosage: 10 MG, OTHER
     Route: 048
     Dates: start: 20040121
  25. ZYPREXA ZYDIS [Suspect]
     Dosage: 10 MG, EACH EVENING
     Route: 048
     Dates: start: 20060418, end: 20060425
  26. ZYPREXA ZYDIS [Suspect]
     Dosage: 5 MG, 2/D
     Route: 048
     Dates: start: 20060425, end: 20060530
  27. ZYPREXA ZYDIS [Suspect]
     Dosage: 10 MG, EACH EVENING
     Route: 048
     Dates: start: 20060530, end: 20060703
  28. ZYPREXA ZYDIS [Suspect]
     Dosage: 5 MG, 2/D
     Route: 048
     Dates: start: 20060703, end: 20061221
  29. MULTI-VITAMIN [Concomitant]

REACTIONS (11)
  - ABASIA [None]
  - BACK INJURY [None]
  - COMA [None]
  - DIABETES MELLITUS [None]
  - INJURY [None]
  - LIVER DISORDER [None]
  - LOSS OF CONSCIOUSNESS [None]
  - LOWER LIMB FRACTURE [None]
  - OVERDOSE [None]
  - SEDATION [None]
  - WEIGHT INCREASED [None]
